FAERS Safety Report 7245381-9 (Version None)
Quarter: 2011Q1

REPORT INFORMATION
  Report Type: 
  Country: None (occurrence: None)
  Receive Date: 20110126
  Receipt Date: 20110119
  Transmission Date: 20110831
  Serious: Yes (Hospitalization)
  Sender: FDA-Public Use
  Company Number: JP-ROCHE-755163

PATIENT
  Age: 73 Year
  Sex: Female

DRUGS (1)
  1. PEGASYS [Suspect]
     Route: 058

REACTIONS (2)
  - FACIAL NERVE DISORDER [None]
  - BRAIN SCAN ABNORMAL [None]
